FAERS Safety Report 5484973-4 (Version None)
Quarter: 2007Q4

REPORT INFORMATION
  Report Type: 
  Country: None (occurrence: None)
  Receive Date: 20071010
  Receipt Date: 20070928
  Transmission Date: 20080405
  Serious: Yes (Hospitalization, Other)
  Sender: FDA-Public Use
  Company Number: 100#08#2007-03862

PATIENT
  Age: 56 Year
  Sex: Female

DRUGS (1)
  1. TRAMADOL HCL [Suspect]
     Indication: ARTHRALGIA
     Dosage: UP TO 300 MG

REACTIONS (4)
  - CONSTIPATION [None]
  - DIARRHOEA [None]
  - PNEUMATOSIS INTESTINALIS [None]
  - RECTAL TENESMUS [None]
